FAERS Safety Report 18688289 (Version 2)
Quarter: 2021Q1

REPORT INFORMATION
  Report Type: Spontaneous
  Country: CN (occurrence: CN)
  Receive Date: 20201231
  Receipt Date: 20210112
  Transmission Date: 20210419
  Serious: Yes (Other)
  Sender: FDA-Public Use
  Company Number: CN-ASTRAZENECA-2020SF74075

PATIENT
  Age: 20 Year
  Sex: Male
  Weight: 87 kg

DRUGS (9)
  1. SEROQUEL [Suspect]
     Active Substance: QUETIAPINE FUMARATE
     Indication: AFFECTIVE DISORDER
     Route: 048
     Dates: start: 20201130, end: 20201203
  2. XIFUZHI [Concomitant]
     Indication: AFFECTIVE DISORDER
     Route: 048
     Dates: start: 20201126, end: 20201211
  3. SEROQUEL [Suspect]
     Active Substance: QUETIAPINE FUMARATE
     Indication: AFFECTIVE DISORDER
     Route: 048
     Dates: start: 20201125, end: 20201130
  4. SEROQUEL XR [Suspect]
     Active Substance: QUETIAPINE FUMARATE
     Indication: AFFECTIVE DISORDER
     Route: 048
     Dates: start: 20201203, end: 20201204
  5. LORAZEPAM. [Concomitant]
     Active Substance: LORAZEPAM
     Indication: AFFECTIVE DISORDER
     Route: 048
     Dates: start: 20201201, end: 20201211
  6. LORAZEPAM. [Concomitant]
     Active Substance: LORAZEPAM
     Indication: AFFECTIVE DISORDER
     Route: 048
     Dates: start: 20201201, end: 20201211
  7. SEROQUEL XR [Suspect]
     Active Substance: QUETIAPINE FUMARATE
     Indication: AFFECTIVE DISORDER
     Route: 048
     Dates: start: 20201204
  8. VITAMIN C [Suspect]
     Active Substance: ASCORBIC ACID
     Indication: AFFECTIVE DISORDER
     Route: 048
     Dates: start: 20201130, end: 20201216
  9. XIFUZHI [Concomitant]
     Indication: AFFECTIVE DISORDER
     Route: 048
     Dates: start: 20201125, end: 20201126

REACTIONS (1)
  - Hyperuricaemia [Recovering/Resolving]

NARRATIVE: CASE EVENT DATE: 20201210
